FAERS Safety Report 25365627 (Version 2)
Quarter: 2025Q3

REPORT INFORMATION
  Report Type: Report from Study
  Country: US (occurrence: US)
  Receive Date: 20250527
  Receipt Date: 20250908
  Transmission Date: 20251020
  Serious: Yes (Other)
  Sender: MALLINCKRODT
  Company Number: US-MALLINCKRODT-MNK202502464

PATIENT
  Age: 67 Year
  Sex: Female

DRUGS (16)
  1. CORTICOTROPIN [Suspect]
     Active Substance: CORTICOTROPIN
     Indication: Uveitis
     Dosage: 80 UNITS
     Route: 058
     Dates: start: 20250422
  2. BOTOX [Concomitant]
     Active Substance: ONABOTULINUMTOXINA
     Indication: Migraine
  3. LEQVIO [Concomitant]
     Active Substance: INCLISIRAN SODIUM
     Indication: Low density lipoprotein
  4. VYEPTI [Concomitant]
     Active Substance: EPTINEZUMAB-JJMR
     Indication: Migraine
     Route: 042
  5. ZOFRAN [Concomitant]
     Active Substance: ONDANSETRON HYDROCHLORIDE
  6. SODIUM CHLORIDE [Concomitant]
     Active Substance: SODIUM CHLORIDE
  7. TYLENOL [Concomitant]
     Active Substance: ACETAMINOPHEN
  8. BENADRYL [Concomitant]
     Active Substance: DIPHENHYDRAMINE HYDROCHLORIDE
  9. THIAMINE [Concomitant]
     Active Substance: THIAMINE
  10. MAGNESIUM [Concomitant]
     Active Substance: MAGNESIUM
  11. CALCIUM [Concomitant]
     Active Substance: CALCIUM
  12. RIBOFLAVIN [Concomitant]
     Active Substance: RIBOFLAVIN
  13. VITAMIN D [Concomitant]
     Active Substance: VITAMIN D NOS
  14. PREDNISONE [Concomitant]
     Active Substance: PREDNISONE
  15. EPIPEN [Concomitant]
     Active Substance: EPINEPHRINE
  16. VITAMINS NOS [Concomitant]
     Active Substance: VITAMINS

REACTIONS (9)
  - Uveitis [Not Recovered/Not Resolved]
  - Polychondritis [Unknown]
  - Psychomotor hyperactivity [Unknown]
  - Anxiety [Unknown]
  - Insomnia [Unknown]
  - Injection site bruising [Recovered/Resolved]
  - Injection site pain [Recovering/Resolving]
  - Injection site haemorrhage [Unknown]
  - Injection site mass [Recovered/Resolved]

NARRATIVE: CASE EVENT DATE: 20250101
